FAERS Safety Report 9893336 (Version 2)
Quarter: 2014Q1

REPORT INFORMATION
  Report Type: Spontaneous
  Country: JP (occurrence: JP)
  Receive Date: 20140213
  Receipt Date: 20140319
  Transmission Date: 20141002
  Serious: Yes (Death)
  Sender: FDA-Public Use
  Company Number: JP-JNJFOC-20140204746

PATIENT
  Age: 74 Year
  Sex: Female
  Weight: 42 kg

DRUGS (3)
  1. SIMPONI [Suspect]
     Indication: RHEUMATOID ARTHRITIS
     Route: 058
     Dates: start: 20131121, end: 20140123
  2. METHOTREXATE [Suspect]
     Indication: RHEUMATOID ARTHRITIS
     Route: 048
     Dates: start: 20101130, end: 20140204
  3. IGURATIMOD [Suspect]
     Indication: RHEUMATOID ARTHRITIS
     Route: 048
     Dates: start: 20130725, end: 20140222

REACTIONS (2)
  - Interstitial lung disease [Fatal]
  - Pneumocystis jirovecii pneumonia [Fatal]
